FAERS Safety Report 4791736-1 (Version None)
Quarter: 2005Q4

REPORT INFORMATION
  Report Type: 
  Country: None (occurrence: None)
  Receive Date: 20051007
  Receipt Date: 20050622
  Transmission Date: 20060501
  Serious: Yes (Death, Other)
  Sender: FDA-Public Use
  Company Number: PHBS2005BE09126

PATIENT
  Age: 82 Year
  Sex: Female
  Weight: 62 kg

DRUGS (7)
  1. ZOMETA [Suspect]
     Indication: METASTASES TO BONE
     Dosage: 4 MG, QMO
     Route: 042
     Dates: start: 20040929, end: 20050427
  2. SEROXAT [Concomitant]
     Route: 065
     Dates: start: 20050302
  3. MPA [Concomitant]
     Route: 065
     Dates: start: 20050302
  4. LASIX [Concomitant]
     Route: 065
     Dates: start: 20021213
  5. ATROVENT [Concomitant]
     Route: 065
     Dates: start: 20030501
  6. KREDEX [Concomitant]
     Route: 065
     Dates: start: 20030401
  7. NAVELBINE [Concomitant]
     Dates: start: 20040929

REACTIONS (7)
  - DEATH [None]
  - GINGIVAL PAIN [None]
  - METASTASES TO BONE [None]
  - ORAL DISCHARGE [None]
  - ORAL MUCOSAL DISORDER [None]
  - OSTEONECROSIS [None]
  - TOOTH DEPOSIT [None]
